FAERS Safety Report 5656456-X (Version None)
Quarter: 2008Q1

REPORT INFORMATION
  Report Type: 
  Country: None (occurrence: None)
  Receive Date: 20080309
  Receipt Date: 20080108
  Transmission Date: 20080703
  Serious: No
  Sender: FDA-Public Use
  Company Number: US-BAYER-200810190BCC

PATIENT
  Age: 56 Year
  Sex: Female
  Weight: 61 kg

DRUGS (3)
  1. ALEVE [Suspect]
     Indication: NEUROMA
     Dosage: AS USED: 220 MG  UNIT DOSE: 220 MG
     Route: 048
  2. BUSPIRONE HCL [Concomitant]
  3. BAYER WOMEN'S ASPIRIN [Concomitant]

REACTIONS (1)
  - NEUROMA [None]
